FAERS Safety Report 4448157-0 (Version None)
Quarter: 2004Q3

REPORT INFORMATION
  Report Type: 
  Country: None (occurrence: None)
  Receive Date: 20040812
  Receipt Date: 20040617
  Transmission Date: 20050211
  Serious: No
  Sender: FDA-Public Use
  Company Number: USA040670491

PATIENT
  Age: 57 Year
  Sex: Male
  Weight: 105 kg

DRUGS (5)
  1. CIALIS [Suspect]
     Indication: ERECTILE DYSFUNCTION
     Dosage: 20 MG/1 AS NEEDED
     Dates: start: 20040613
  2. LIPITOR [Concomitant]
  3. PRAVACHOL [Concomitant]
  4. CLARINEX [Concomitant]
  5. TESTOSTERONE [Concomitant]

REACTIONS (2)
  - SWELLING FACE [None]
  - URTICARIA GENERALISED [None]
